FAERS Safety Report 4916596-7 (Version None)
Quarter: 2006Q1

REPORT INFORMATION
  Report Type: 
  Country: None (occurrence: None)
  Receive Date: 20060220
  Receipt Date: 20060118
  Transmission Date: 20060701
  Serious: Yes (Hospitalization, Disabling)
  Sender: FDA-Public Use
  Company Number: JP-JPN-A200600244

PATIENT
  Age: 43 Year
  Sex: Male
  Weight: 55 kg

DRUGS (4)
  1. FLUTIDE [Suspect]
     Indication: ASTHMA
     Dosage: 400MCG TWICE PER DAY
     Route: 055
     Dates: start: 20030226, end: 20031010
  2. ONON [Suspect]
     Indication: ASTHMA
     Dosage: 225MG TWICE PER DAY
     Route: 048
     Dates: start: 20030806, end: 20030820
  3. UNIPHYL [Concomitant]
     Indication: ASTHMA
     Dosage: 400MG PER DAY
     Route: 048
     Dates: start: 20030226, end: 20031010
  4. TULOBUTEROL [Concomitant]
     Indication: ASTHMA
     Dosage: 2MG PER DAY
     Route: 062
     Dates: start: 20030226, end: 20031010

REACTIONS (13)
  - ABDOMINAL PAIN UPPER [None]
  - ALLERGIC GRANULOMATOUS ANGIITIS [None]
  - COUGH [None]
  - EOSINOPHILIA [None]
  - EOSINOPHILIC PNEUMONIA [None]
  - HAEMOPTYSIS [None]
  - HYPOAESTHESIA [None]
  - LUNG CONSOLIDATION [None]
  - LUNG NEOPLASM [None]
  - LYMPHADENOPATHY MEDIASTINAL [None]
  - PLEURAL EFFUSION [None]
  - TRACHEOBRONCHITIS [None]
  - WEIGHT DECREASED [None]
